FAERS Safety Report 5968460-2 (Version None)
Quarter: 2008Q4

REPORT INFORMATION
  Report Type: 
  Country: None (occurrence: None)
  Receive Date: 20081126
  Receipt Date: 20081113
  Transmission Date: 20090506
  Serious: Yes (Other)
  Sender: FDA-Public Use
  Company Number: JP-BRISTOL-MYERS SQUIBB COMPANY-14387088

PATIENT
  Age: 57 Year
  Sex: Male
  Weight: 39 kg

DRUGS (10)
  1. ABILIFY [Suspect]
     Indication: SCHIZOPHRENIA
     Dosage: 9DAY,29MAY-11JUN08,12-18JUN08,19JUN-30JUL08,31JUL-13AUG08,14-18AUG08,19-21AUG08:12MG,22-25AUG08:6MG
     Route: 048
     Dates: start: 20080520, end: 20080825
  2. SULPIRIDE [Concomitant]
     Dosage: STARTED BEFORE 2005
  3. BIPERIDEN HYDROCHLORIDE TAB [Concomitant]
     Dates: end: 20080731
  4. RISPERIDONE [Concomitant]
     Dosage: STARTED BEFORE 2005
  5. BROMAZEPAM [Concomitant]
  6. FAMOTIDINE [Concomitant]
  7. TRIAZOLAM [Concomitant]
     Dosage: TABS
  8. FLUNITRAZEPAM [Concomitant]
     Dosage: TABS
  9. SENNOSIDE [Concomitant]
     Dosage: TABS
     Dates: start: 20070308
  10. HALOPERIDOL [Concomitant]
     Dosage: INJECTION
     Dates: start: 20080805, end: 20080901

REACTIONS (4)
  - DELUSION [None]
  - DIET REFUSAL [None]
  - HALLUCINATION [None]
  - MUSCULAR WEAKNESS [None]
